FAERS Safety Report 18445642 (Version 1)
Quarter: 2020Q4

REPORT INFORMATION
  Report Type: Spontaneous
  Country: US (occurrence: US)
  Receive Date: 20201030
  Receipt Date: 20201030
  Transmission Date: 20210114
  Serious: Yes (Hospitalization)
  Sender: FDA-Public Use
  Company Number: US-MYLANLABS-2020M1090993

PATIENT
  Age: 55 Year
  Sex: Male

DRUGS (4)
  1. AMIODARONE [Suspect]
     Active Substance: AMIODARONE
     Indication: CARDIAC FAILURE ACUTE
     Dosage: INFUSION
     Route: 065
  2. METOPROLOL. [Suspect]
     Active Substance: METOPROLOL
     Indication: CARDIAC FAILURE ACUTE
     Dosage: MULTIPLE DOSES FOR SEVERAL HOURS.
     Route: 042
  3. DILTIAZEM. [Suspect]
     Active Substance: DILTIAZEM
     Indication: CARDIAC FAILURE ACUTE
     Dosage: SEVERAL DOSES
     Route: 042
  4. RIVAROXABAN [Concomitant]
     Active Substance: RIVAROXABAN
     Indication: ANTICOAGULANT THERAPY
     Route: 065

REACTIONS (2)
  - BRASH syndrome [Recovering/Resolving]
  - Toxicity to various agents [Unknown]
